FAERS Safety Report 9064085 (Version 1)
Quarter: 2013Q1

REPORT INFORMATION
  Report Type: Report from Study
  Country: US (occurrence: US)
  Receive Date: 20130130
  Receipt Date: 20130130
  Transmission Date: 20140127
  Serious: No
  Sender: FDA-Public Use
  Company Number: US-ABBOTT-12P-163-0954147-00

PATIENT
  Age: 62 Year
  Sex: Female

DRUGS (13)
  1. HUMIRA 40 MG/0.8 ML PEN [Suspect]
     Indication: PSORIASIS
     Dates: start: 201207
  2. HUMIRA 40 MG/0.8 ML PEN [Suspect]
     Dates: start: 20120526, end: 20120616
  3. NARDIL [Concomitant]
     Indication: DEPRESSION
     Dosage: 2 IN AM AND 1 IN PM
  4. SYNTHROID [Concomitant]
     Indication: HYPOTHYROIDISM
  5. THEOPHYLLINE [Concomitant]
     Indication: ASTHMA
     Dosage: 1 AM AND 1 PM
  6. MOBIC [Concomitant]
     Indication: ARTHRALGIA
     Dosage: 7.5 DAILY AT 1 PM
  7. ELESTAT [Concomitant]
     Indication: EYE DISORDER
  8. CLARITIN [Concomitant]
     Indication: HYPERSENSITIVITY
  9. MULTIVITAMIN [Concomitant]
     Indication: VITAMIN SUPPLEMENTATION
     Dosage: DAILY
  10. VITAMIN D3 [Concomitant]
     Indication: VITAMIN D DEFICIENCY
     Dosage: DAILY
  11. GLUCOSAMINE CHONDROITIN [Concomitant]
     Indication: PRODUCT USED FOR UNKNOWN INDICATION
     Dosage: 1200MG DAILY
  12. CALCIUM [Concomitant]
     Indication: PRODUCT USED FOR UNKNOWN INDICATION
  13. FISH OIL [Concomitant]
     Indication: PRODUCT USED FOR UNKNOWN INDICATION
     Dosage: 500MG DAILY

REACTIONS (5)
  - Malaise [Recovering/Resolving]
  - Sinus headache [Recovered/Resolved]
  - Rash erythematous [Recovering/Resolving]
  - Sinusitis [Recovering/Resolving]
  - Oropharyngeal pain [Recovering/Resolving]
